FAERS Safety Report 6226172-4 (Version None)
Quarter: 2009Q2

REPORT INFORMATION
  Report Type: 
  Country: None (occurrence: None)
  Receive Date: 20090612
  Receipt Date: 20090511
  Transmission Date: 20091009
  Serious: Yes (Hospitalization)
  Sender: FDA-Public Use
  Company Number: US-ABBOTT-09P-163-0572511-00

PATIENT
  Sex: Female
  Weight: 56.75 kg

DRUGS (4)
  1. HUMIRA [Suspect]
     Indication: ALPHA TUMOUR NECROSIS FACTOR INCREASED
     Route: 058
     Dates: start: 20080501, end: 20090201
  2. HUMIRA [Suspect]
     Dates: start: 20090101
  3. HUMIRA [Suspect]
  4. HUMIRA [Suspect]
     Indication: ALPHA TUMOUR NECROSIS FACTOR INCREASED
     Route: 058
     Dates: start: 20090101

REACTIONS (4)
  - DRUG DOSE OMISSION [None]
  - INSOMNIA [None]
  - PAIN [None]
  - PNEUMONIA [None]
